FAERS Safety Report 20298309 (Version 2)
Quarter: 2022Q1

REPORT INFORMATION
  Report Type: Other
  Country: US (occurrence: None)
  Receive Date: 20220105
  Receipt Date: 20220122
  Transmission Date: 20220423
  Serious: Yes (Disabling)
  Sender: FDA-Public Use
  Company Number: US-ROCHE-2991632

PATIENT
  Sex: Female
  Weight: 108.05 kg

DRUGS (15)
  1. ALECENSA [Suspect]
     Active Substance: ALECTINIB HYDROCHLORIDE
     Indication: Lung neoplasm malignant
     Dosage: TAKE 3 CAPSULE(S) BY MOUTH EVERY MORNING + TAKE 2 CAPSULE(S) BY MOUTH EVERY EVENING
     Route: 048
     Dates: start: 20171120
  2. ALECENSA [Suspect]
     Active Substance: ALECTINIB HYDROCHLORIDE
     Indication: Embolism venous
  3. ALECENSA [Suspect]
     Active Substance: ALECTINIB HYDROCHLORIDE
     Indication: Non-small cell lung cancer metastatic
  4. XALKORI [Concomitant]
     Active Substance: CRIZOTINIB
     Dates: start: 20130604
  5. CLOBETASOL PROPIONATE [Concomitant]
     Active Substance: CLOBETASOL PROPIONATE
  6. REQUIP [Concomitant]
     Active Substance: ROPINIROLE HYDROCHLORIDE
  7. APIXABAN [Concomitant]
     Active Substance: APIXABAN
  8. BETAPACE [Concomitant]
     Active Substance: SOTALOL HYDROCHLORIDE
  9. LASIX [Concomitant]
     Active Substance: FUROSEMIDE
  10. LATANOPROST [Concomitant]
     Active Substance: LATANOPROST
  11. LIPITOR [Concomitant]
     Active Substance: ATORVASTATIN CALCIUM
  12. MIDODRINE HYDROCHLORIDE [Concomitant]
     Active Substance: MIDODRINE HYDROCHLORIDE
  13. PANTOPRAZOLE SODIUM [Concomitant]
     Active Substance: PANTOPRAZOLE SODIUM
  14. POTASSIUM [Concomitant]
     Active Substance: POTASSIUM
  15. REFRESH CLASSIC [Concomitant]
     Active Substance: POLYVINYL ALCOHOL\POVIDONE

REACTIONS (4)
  - Disability [Unknown]
  - Hypoacusis [Unknown]
  - Balance disorder [Unknown]
  - Hepatic lesion [Unknown]
